FAERS Safety Report 8027596-5 (Version None)
Quarter: 2012Q1

REPORT INFORMATION
  Report Type: 
  Country: None (occurrence: None)
  Receive Date: 20120106
  Receipt Date: 20120103
  Transmission Date: 20120608
  Serious: Yes (Other)
  Sender: FDA-Public Use
  Company Number: US-BAYER-2012-000797

PATIENT
  Age: 17 Year
  Sex: Female

DRUGS (1)
  1. MIRENA [Suspect]
     Indication: CONTRACEPTION
     Dosage: 20 MCG/24HR, CONT
     Dates: start: 20100801

REACTIONS (7)
  - VAGINAL DISORDER [None]
  - MENSTRUATION IRREGULAR [None]
  - VAGINAL HAEMORRHAGE [None]
  - VULVOVAGINAL DISCOMFORT [None]
  - URINARY TRACT INFECTION [None]
  - GENITAL HAEMORRHAGE [None]
  - VULVOVAGINAL PRURITUS [None]
